FAERS Safety Report 6521863-X (Version None)
Quarter: 2009Q4

REPORT INFORMATION
  Report Type: 
  Country: None (occurrence: None)
  Receive Date: 20091224
  Receipt Date: 20091214
  Transmission Date: 20100525
  Serious: Yes (Death)
  Sender: FDA-Public Use
  Company Number: A-NJ2009-31514

PATIENT
  Age: 56 Year
  Sex: Female

DRUGS (3)
  1. VENTAVIS [Suspect]
     Indication: PULMONARY ARTERIAL HYPERTENSION
     Dosage: RESPIRATORY
     Route: 055
     Dates: start: 20090212, end: 20091201
  2. TRACLEER [Concomitant]
  3. REVATIO (SILENAFIL CITRATE) [Concomitant]

REACTIONS (1)
  - DEATH [None]
